FAERS Safety Report 21051196 (Version 1)
Quarter: 2022Q3

REPORT INFORMATION
  Report Type: Spontaneous
  Country: ES (occurrence: ES)
  Receive Date: 20220707
  Receipt Date: 20220707
  Transmission Date: 20221026
  Serious: Yes (Other)
  Sender: FDA-Public Use
  Company Number: None

PATIENT
  Age: 92 Year
  Sex: Female
  Weight: 50 kg

DRUGS (2)
  1. EPLERENONE [Suspect]
     Active Substance: EPLERENONE
     Indication: Cardiac failure congestive
     Dosage: EPLERENONA (2924A) , UNIT DOSE : 50MG ,FREQUENCY TIME : 24 HOURS , DURATION : 562 DAYS
     Route: 048
     Dates: start: 20201123, end: 20220608
  2. ENALAPRIL [Suspect]
     Active Substance: ENALAPRIL
     Indication: Product used for unknown indication
     Dosage: ENALAPRIL (2142A) , UNIT DOSE : 5 MG  , FREQUENCY TIME : 24 HOURS , DURATION : 960 DAYS
     Route: 048
     Dates: start: 20190723, end: 20220308

REACTIONS (1)
  - Acute kidney injury [Recovered/Resolved]

NARRATIVE: CASE EVENT DATE: 20220308
